FAERS Safety Report 5130106-3 (Version None)
Quarter: 2006Q4

REPORT INFORMATION
  Report Type: 
  Country: None (occurrence: None)
  Receive Date: 20061013
  Receipt Date: 20060925
  Transmission Date: 20070319
  Serious: Yes (Hospitalization)
  Sender: FDA-Public Use
  Company Number: NZ200610000307

PATIENT
  Age: 63 Year
  Sex: Female

DRUGS (2)
  1. ZYPREXA [Suspect]
     Indication: SCHIZOPHRENIA
     Dates: end: 20060924
  2. ANTIPSYCHOTICS [Concomitant]

REACTIONS (3)
  - CONDITION AGGRAVATED [None]
  - MENTAL DISORDER [None]
  - NEUTROPENIA [None]
